FAERS Safety Report 10381866 (Version 2)
Quarter: 2014Q3

REPORT INFORMATION
  Report Type: Spontaneous
  Country: FR (occurrence: FR)
  Receive Date: 20140813
  Receipt Date: 20140813
  Transmission Date: 20150326
  Serious: Yes (Hospitalization)
  Sender: FDA-Public Use
  Company Number: FR-GLAXOSMITHKLINE-B0485348A

PATIENT
  Age: 10 Month
  Sex: Male
  Weight: 9.5 kg

DRUGS (4)
  1. VENTOLINE [Concomitant]
     Active Substance: ALBUTEROL
     Indication: BRONCHIOLITIS
     Route: 065
     Dates: start: 200707
  2. FLIXOTIDE [Concomitant]
     Active Substance: FLUTICASONE PROPIONATE
     Indication: BRONCHIOLITIS
     Route: 065
     Dates: start: 200707
  3. CLAMOXYL [Suspect]
     Active Substance: AMOXICILLIN\CLAVULANIC ACID
     Indication: OROPHARYNGEAL PAIN
     Route: 048
     Dates: start: 20070803, end: 20070806
  4. DOLIPRANE [Suspect]
     Active Substance: ACETAMINOPHEN
     Route: 065
     Dates: start: 20070803, end: 20070806

REACTIONS (1)
  - Toxic epidermal necrolysis [Recovered/Resolved]

NARRATIVE: CASE EVENT DATE: 20070804
